FAERS Safety Report 12290839 (Version 1)
Quarter: 2016Q2

REPORT INFORMATION
  Report Type: Spontaneous
  Country: FR (occurrence: FR)
  Receive Date: 20160421
  Receipt Date: 20160421
  Transmission Date: 20160815
  Serious: Yes (Hospitalization)
  Sender: FDA-Public Use
  Company Number: FR-SA-2016SA078060

PATIENT
  Age: 82 Year
  Sex: Male

DRUGS (15)
  1. LASILIX [Suspect]
     Active Substance: FUROSEMIDE
     Dosage: FORM: DIVISIBLE TABLET
     Route: 048
     Dates: end: 20160329
  2. GAVISCON [Concomitant]
     Active Substance: ALUMINUM HYDROXIDE\MAGNESIUM CARBONATE
  3. LEVOTHYROX [Concomitant]
     Active Substance: LEVOTHYROXINE
     Dosage: FORM: SCORED TABLET
  4. PARACETAMOL [Concomitant]
     Active Substance: ACETAMINOPHEN
  5. DEBRIDAT [Concomitant]
     Active Substance: TRIMEBUTINE MALEATE
  6. APROVEL [Suspect]
     Active Substance: IRBESARTAN
     Route: 048
  7. DIGOXINE NATIVELLE [Suspect]
     Active Substance: DIGOXIN
     Route: 048
     Dates: end: 20160331
  8. TARDYFERON [Concomitant]
     Active Substance: FERROUS SULFATE\FOLIC ACID
  9. SPASFON [Concomitant]
     Active Substance: PHLOROGLUCINOL
  10. METFORMIN [Suspect]
     Active Substance: METFORMIN HYDROCHLORIDE
     Route: 048
     Dates: end: 20160329
  11. TAHOR [Concomitant]
     Active Substance: ATORVASTATIN CALCIUM
  12. AMLODIPINE [Concomitant]
     Active Substance: AMLODIPINE BESYLATE
     Dosage: PROLONGED RELEASE
  13. TEMESTA [Concomitant]
     Active Substance: LORAZEPAM
     Dosage: SCORED TABLET
  14. INIPOMP [Concomitant]
     Active Substance: PANTOPRAZOLE SODIUM
  15. ALPRAZOLAM. [Concomitant]
     Active Substance: ALPRAZOLAM

REACTIONS (3)
  - Acute kidney injury [Recovered/Resolved]
  - Confusional state [Recovered/Resolved]
  - Hallucination, visual [Recovered/Resolved]

NARRATIVE: CASE EVENT DATE: 20160329
